FAERS Safety Report 17790466 (Version 1)
Quarter: 2020Q2

REPORT INFORMATION
  Report Type: Spontaneous
  Country: US (occurrence: US)
  Receive Date: 20200514
  Receipt Date: 20200514
  Transmission Date: 20200714
  Serious: Yes (Other)
  Sender: FDA-Public Use
  Company Number: None

PATIENT
  Age: 78 Year
  Sex: Male

DRUGS (11)
  1. XELJANZ [Suspect]
     Active Substance: TOFACITINIB CITRATE
     Indication: RHEUMATOID ARTHRITIS
     Route: 048
     Dates: start: 20171215
  2. LOVASTATIN. [Concomitant]
     Active Substance: LOVASTATIN
  3. ZYRTEC [Concomitant]
     Active Substance: CETIRIZINE HYDROCHLORIDE
  4. ASPIRIN. [Concomitant]
     Active Substance: ASPIRIN
  5. MOTOPROLOL [Concomitant]
  6. OMEPRAZOLE. [Concomitant]
     Active Substance: OMEPRAZOLE
  7. MULTIVITAMIN [Concomitant]
     Active Substance: VITAMINS
  8. AMLODIPINE [Concomitant]
     Active Substance: AMLODIPINE BESYLATE
  9. GEMFIBROZIL. [Concomitant]
     Active Substance: GEMFIBROZIL
  10. GLIPIZIDE. [Concomitant]
     Active Substance: GLIPIZIDE
  11. METFORMIN [Concomitant]
     Active Substance: METFORMIN HYDROCHLORIDE

REACTIONS (2)
  - Cerebrovascular accident [None]
  - Speech disorder [None]
